FAERS Safety Report 21903717 (Version 1)
Quarter: 2023Q1

REPORT INFORMATION
  Report Type: Spontaneous
  Country: GB (occurrence: GB)
  Receive Date: 20230124
  Receipt Date: 20230124
  Transmission Date: 20230418
  Serious: Yes (Death, Other)
  Sender: FDA-Public Use
  Company Number: GB-MYLANLABS-2023M1008422

PATIENT
  Sex: Male

DRUGS (1)
  1. VORICONAZOLE [Suspect]
     Active Substance: VORICONAZOLE
     Indication: Aspergillus infection
     Dosage: UNK
     Route: 065
     Dates: start: 2003, end: 2014

REACTIONS (3)
  - Squamous cell carcinoma [Fatal]
  - Metastatic squamous cell carcinoma [Fatal]
  - Photosensitivity reaction [Unknown]
